FAERS Safety Report 8559572-8 (Version None)
Quarter: 2012Q3

REPORT INFORMATION
  Report Type: 
  Country: None (occurrence: None)
  Receive Date: 20120727
  Receipt Date: 20120727
  Transmission Date: 20120928
  Serious: Yes (Other)
  Sender: FDA-Public Use
  Company Number: None

PATIENT
  Age: 17 Year
  Sex: Male
  Weight: 65.7716 kg

DRUGS (1)
  1. KID'S WET SKIN SUNSCREEN SPT 70+ NEUTROGENA [Suspect]
     Indication: PROPHYLAXIS AGAINST SOLAR RADIATION
     Dosage: APPLY LIBERALLY TOP
     Route: 061
     Dates: start: 20120620, end: 20120620

REACTIONS (3)
  - BURNS SECOND DEGREE [None]
  - APPLICATION SITE BURN [None]
  - SUNBURN [None]
